FAERS Safety Report 10920692 (Version 1)
Quarter: 2015Q1

REPORT INFORMATION
  Report Type: Spontaneous
  Country: US (occurrence: None)
  Receive Date: 20150313
  Receipt Date: 20150313
  Transmission Date: 20150721
  Serious: Yes (Disabling, Other)
  Sender: FDA-Public Use
  Company Number: None

PATIENT
  Age: 73 Year
  Sex: Female
  Weight: 78.02 kg

DRUGS (6)
  1. PRESERVISION [Concomitant]
     Active Substance: MINERALS\VITAMINS
  2. VITAMIN 1-A-DAY [Concomitant]
  3. LEVAQUIN [Suspect]
     Active Substance: LEVOFLOXACIN
     Indication: CYSTITIS
     Dosage: 1 ONCE DAILY TAKEN BY MOUTH
     Route: 048
  4. MAGNESIUM [Concomitant]
     Active Substance: MAGNESIUM
  5. METFORMIN [Concomitant]
     Active Substance: METFORMIN HYDROCHLORIDE
  6. LIQUID B-12 [Concomitant]

REACTIONS (9)
  - Tendon rupture [None]
  - Asthenia [None]
  - Heart rate increased [None]
  - Diplopia [None]
  - Gait disturbance [None]
  - Pain [None]
  - Diarrhoea [None]
  - Fatigue [None]
  - Renal disorder [None]

NARRATIVE: CASE EVENT DATE: 20100807
